FAERS Safety Report 9151008 (Version 1)
Quarter: 2013Q1

REPORT INFORMATION
  Report Type: Spontaneous
  Country: ES (occurrence: None)
  Receive Date: 20130201
  Receipt Date: 20130201
  Transmission Date: 20140127
  Serious: Yes (Other)
  Sender: FDA-Public Use
  Company Number: DSM-2013-00120

PATIENT
  Age: 82 Year
  Sex: Female

DRUGS (4)
  1. OLMETEC PLUS [Suspect]
     Route: 048
     Dates: start: 2012, end: 20121121
  2. UNSPECIFED MEDICATIONS [Suspect]
     Dosage: WHEN NEEDED
     Route: 048
     Dates: start: 2012, end: 20121121
  3. RIPRAZO [Suspect]
     Dosage: 150 MG (150 MG, 1 IN 1 D), ORAL
     Route: 048
     Dates: start: 2012
  4. PARACETAMOL (PARACETAMOL) (PARACETAMOL) [Concomitant]

REACTIONS (2)
  - Drug interaction [None]
  - Renal failure chronic [None]
